FAERS Safety Report 10512717 (Version 2)
Quarter: 2014Q4

REPORT INFORMATION
  Report Type: Report from Study
  Country: KR (occurrence: KR)
  Receive Date: 20141012
  Receipt Date: 20141012
  Transmission Date: 20150528
  Serious: Yes (Death, Life-Threatening, Hospitalization)
  Sender: FDA-Public Use
  Company Number: KR-BRISTOL-MYERS SQUIBB COMPANY-17005760

PATIENT
  Age: 71 Year
  Sex: Male

DRUGS (7)
  1. CARBOPLATIN. [Suspect]
     Active Substance: CARBOPLATIN
     Indication: NON-SMALL CELL LUNG CANCER
     Dosage: 4JUL12:607MG,COURSE:1,24-24JUL12:491MG,IV.17-17AUG12:305MG,COURSE:3,5-5SEP12:526MG?17-17AUG12:524MG
     Route: 042
     Dates: start: 20120704, end: 20120905
  2. BLINDED: IPILIMUMAB [Suspect]
     Active Substance: IPILIMUMAB
     Indication: NON-SMALL CELL LUNG CANCER
     Dosage: 17AUG12:131.6ML,COURSE:4.5-5SEP12:130.6ML
     Route: 042
     Dates: start: 20120817, end: 20120905
  3. PLACEBO [Suspect]
     Active Substance: UNSPECIFIED INGREDIENT
     Indication: NON-SMALL CELL LUNG CANCER
     Route: 042
     Dates: start: 20120817, end: 20120905
  4. PACLITAXEL. [Suspect]
     Active Substance: PACLITAXEL
     Indication: NON-SMALL CELL LUNG CANCER
     Dosage: 4JUL12: 299MG,24-24JUL2012:306MG,5-5SEP12:303MG?17-17AUG12:305MG
     Route: 042
     Dates: start: 20120704, end: 20120905
  5. IBUPROFEN+ACETAMINOPHEN+CODEINE PHOS [Concomitant]
     Dates: start: 20120704
  6. MEGESTROL [Concomitant]
     Active Substance: MEGESTROL
     Dates: start: 20120704
  7. METOCLOPRAMIDE. [Concomitant]
     Active Substance: METOCLOPRAMIDE
     Dosage: 05SEP2012.
     Dates: start: 20120704

REACTIONS (3)
  - Acute hepatic failure [Fatal]
  - Pneumonia [Fatal]
  - Acute kidney injury [Fatal]

NARRATIVE: CASE EVENT DATE: 20120926
